FAERS Safety Report 7627297-9 (Version None)
Quarter: 2011Q3

REPORT INFORMATION
  Report Type: 
  Country: None (occurrence: None)
  Receive Date: 20110721
  Receipt Date: 20110712
  Transmission Date: 20111222
  Serious: Yes (Other)
  Sender: FDA-Public Use
  Company Number: PHHY2011ES62087

PATIENT
  Sex: Female

DRUGS (1)
  1. ILARIS [Suspect]
     Indication: JUVENILE ARTHRITIS
     Dosage: 4 MG/KG, UNK
     Route: 058
     Dates: start: 20110621

REACTIONS (1)
  - TRANSAMINASES INCREASED [None]
